FAERS Safety Report 4352258-5 (Version None)
Quarter: 2004Q2

REPORT INFORMATION
  Report Type: 
  Country: None (occurrence: None)
  Receive Date: 20040428
  Receipt Date: 20040419
  Transmission Date: 20050107
  Serious: Yes (Other)
  Sender: FDA-Public Use
  Company Number: BE-JNJFOC-20040303560

PATIENT
  Age: 6 Year
  Sex: Male

DRUGS (3)
  1. CISAPRIDE (CISAPRIDE) TABELTS [Suspect]
     Indication: GASTROOESOPHAGEAL REFLUX DISEASE
     Dosage: ORAL; 05 MG, 3 IN 1 DAY, ORAL
     Route: 048
     Dates: start: 20030408, end: 20030610
  2. CISAPRIDE (CISAPRIDE) TABELTS [Suspect]
     Indication: GASTROOESOPHAGEAL REFLUX DISEASE
     Dosage: ORAL; 05 MG, 3 IN 1 DAY, ORAL
     Route: 048
     Dates: start: 20010301
  3. BECOTIDE (BECLOMETASONE DIPROPIONATE) AEROSOLS [Concomitant]

REACTIONS (2)
  - DRUG INEFFECTIVE [None]
  - FUNDOPLICATION [None]
